FAERS Safety Report 25182609 (Version 2)
Quarter: 2025Q3

REPORT INFORMATION
  Report Type: Spontaneous
  Country: US (occurrence: US)
  Receive Date: 20250410
  Receipt Date: 20250708
  Transmission Date: 20251020
  Serious: Yes (Death, Hospitalization, Other)
  Sender: RANBAXY
  Company Number: US-SUN PHARMACEUTICAL INDUSTRIES LTD-2025R1-501845

PATIENT
  Age: 21 Year
  Sex: Female

DRUGS (1)
  1. METFORMIN [Suspect]
     Active Substance: METFORMIN HYDROCHLORIDE
     Indication: Product used for unknown indication
     Route: 065

REACTIONS (8)
  - Acidosis [Fatal]
  - Cardiac arrest [Fatal]
  - Shock [Fatal]
  - Abdominal pain [Unknown]
  - Agitation [Unknown]
  - Hypoglycaemia [Unknown]
  - Hypothermia [Unknown]
  - Overdose [Unknown]
